FAERS Safety Report 6615888-3 (Version None)
Quarter: 2010Q1

REPORT INFORMATION
  Report Type: 
  Country: None (occurrence: None)
  Receive Date: 20100305
  Receipt Date: 20100223
  Transmission Date: 20100710
  Serious: Yes (Hospitalization)
  Sender: FDA-Public Use
  Company Number: US-JNJFOC-20100108298

PATIENT
  Sex: Male
  Weight: 95.26 kg

DRUGS (2)
  1. NUCYNTA [Suspect]
     Indication: PAIN
     Route: 048
  2. PAXIL [Interacting]
     Indication: ANXIETY

REACTIONS (3)
  - DRUG INTERACTION [None]
  - ELECTROCARDIOGRAM ABNORMAL [None]
  - SEROTONIN SYNDROME [None]
